FAERS Safety Report 16940510 (Version 2)
Quarter: 2020Q1

REPORT INFORMATION
  Report Type: Spontaneous
  Country: US (occurrence: US)
  Receive Date: 20191021
  Receipt Date: 20200116
  Transmission Date: 20200409
  Serious: Yes (Other)
  Sender: FDA-Public Use
  Company Number: US-PFIZER INC-2019449877

PATIENT
  Age: 64 Year
  Sex: Female
  Weight: 81.19 kg

DRUGS (2)
  1. ADVIL LIQUI-GELS [Suspect]
     Active Substance: IBUPROFEN
     Indication: PAIN
     Dosage: 1 DOSE FORM EVERY 4-6 HOURS (THE SMALLEST DOSE TO BE USED FOR 12 YEARS AND OLDER)
     Route: 048
     Dates: start: 20191014
  2. ADVIL LIQUI-GELS [Suspect]
     Active Substance: IBUPROFEN
     Dosage: 2 DF, UNK (WHILE SYMPTOMS PERSIST OR IF PAIN OR FEVER DOES NOT RESPOND, THEN TAKE 2. SHE TAKES TWO)

REACTIONS (2)
  - Oral discomfort [Recovering/Resolving]
  - Burn oral cavity [Recovering/Resolving]

NARRATIVE: CASE EVENT DATE: 20191014
